FAERS Safety Report 16005231 (Version 6)
Quarter: 2019Q3

REPORT INFORMATION
  Report Type: Spontaneous
  Country: US (occurrence: US)
  Receive Date: 20190226
  Receipt Date: 20190927
  Transmission Date: 20191004
  Serious: No
  Sender: FDA-Public Use
  Company Number: US-PFIZER INC-2019073145

PATIENT
  Age: 59 Year
  Sex: Female
  Weight: 90.7 kg

DRUGS (7)
  1. NEURONTIN [Suspect]
     Active Substance: GABAPENTIN
     Indication: COMPLEX REGIONAL PAIN SYNDROME
     Dosage: 1200 MG, 3X/DAY; (TWO 600 MG TABLET THREE TIMES A DAY)
     Route: 048
     Dates: start: 2001
  2. OXYCONTIN [Concomitant]
     Active Substance: OXYCODONE HYDROCHLORIDE
     Indication: MUSCULAR DYSTROPHY
     Dosage: 20 MG, DAILY
  3. OXYCODONE [Concomitant]
     Active Substance: OXYCODONE
     Indication: PAIN
     Dosage: 10 MG, 3X/DAY (EVERY 8 HOURS)
  4. PROAIR HFA [Concomitant]
     Active Substance: ALBUTEROL SULFATE
     Indication: ASTHMA
     Dosage: UNK, AS NEEDED (2 PUFFS A DAY, AS NEEDED)
     Route: 055
  5. NEURONTIN [Suspect]
     Active Substance: GABAPENTIN
     Indication: SEIZURE
     Dosage: 600 MG, UNK
     Dates: start: 200309
  6. NEURONTIN [Suspect]
     Active Substance: GABAPENTIN
     Dosage: 1200 MG, 3X/DAY (EVERY 8 HOURS)
     Dates: start: 2001
  7. OXYCODONE [Concomitant]
     Active Substance: OXYCODONE
     Indication: MUSCULAR DYSTROPHY
     Dosage: 30 MG, DAILY

REACTIONS (6)
  - Intentional product misuse [Unknown]
  - Intentional dose omission [Unknown]
  - Drug ineffective [Unknown]
  - Product taste abnormal [Unknown]
  - Wrong technique in product usage process [Unknown]
  - Poor quality product administered [Unknown]
